FAERS Safety Report 4404319-X (Version None)
Quarter: 2004Q3

REPORT INFORMATION
  Report Type: 
  Country: None (occurrence: None)
  Receive Date: 20040720
  Receipt Date: 20040705
  Transmission Date: 20050211
  Serious: Yes (Death, Other)
  Sender: FDA-Public Use
  Company Number: GB-2004-028509

PATIENT

DRUGS (8)
  1. CAMPATH [Suspect]
     Indication: ALLOGENIC BONE MARROW TRANSPLANTATION THERAPY
     Dosage: 20 MG/D
  2. FLUDARA [Suspect]
     Indication: ALLOGENIC BONE MARROW TRANSPLANTATION THERAPY
     Dosage: 30 MG/M2
  3. CYCLOSPORINE [Suspect]
     Indication: GRAFT VERSUS HOST DISEASE
  4. CORTICOSTEROID NOS [Suspect]
  5. MELPHALAN [Concomitant]
  6. CO-TRIMOXAZOLE [Concomitant]
  7. CYCLOSPORINE [Concomitant]
  8. ACYCLOVIR [Concomitant]

REACTIONS (10)
  - ANAEMIA HAEMOLYTIC AUTOIMMUNE [None]
  - ASTHENIA [None]
  - GRAFT VERSUS HOST DISEASE [None]
  - HERPES SIMPLEX [None]
  - HERPES ZOSTER [None]
  - HUMAN POLYOMAVIRUS INFECTION [None]
  - INFLUENZA [None]
  - MYELITIS [None]
  - OPTIC NEURITIS [None]
  - RESPIRATORY FAILURE [None]
